FAERS Safety Report 12945618 (Version 1)
Quarter: 2016Q4

REPORT INFORMATION
  Report Type: Spontaneous
  Country: PE (occurrence: PE)
  Receive Date: 20161115
  Receipt Date: 20161115
  Transmission Date: 20170207
  Serious: Yes (Other)
  Sender: FDA-Public Use
  Company Number: PE-PFIZER INC-2016523441

PATIENT
  Age: 63 Year
  Sex: Male

DRUGS (5)
  1. CARDIOASPIRINA [Concomitant]
     Active Substance: ASPIRIN
  2. ZURCAL [Concomitant]
     Active Substance: PANTOPRAZOLE SODIUM
  3. BRILINTA [Concomitant]
     Active Substance: TICAGRELOR
     Dosage: UNK
  4. BETALOC /00376902/ [Concomitant]
     Active Substance: METOPROLOL TARTRATE
  5. LIPITOR [Suspect]
     Active Substance: ATORVASTATIN CALCIUM
     Dosage: 40 MG, DAILY

REACTIONS (1)
  - Myocardial infarction [Unknown]
